FAERS Safety Report 19733288 (Version 1)
Quarter: 2021Q3

REPORT INFORMATION
  Report Type: Report from Study
  Country: US (occurrence: US)
  Receive Date: 20210823
  Receipt Date: 20210823
  Transmission Date: 20211014
  Serious: Yes (Other)
  Sender: FDA-Public Use
  Company Number: US-BIOVITRUM-2021US1791

PATIENT
  Age: 56 Year
  Sex: Female

DRUGS (1)
  1. KINERET [Suspect]
     Active Substance: ANAKINRA
     Indication: MONOCLONAL GAMMOPATHY
     Route: 058
     Dates: start: 20200512

REACTIONS (14)
  - Drug hypersensitivity [Unknown]
  - Injection site bruising [Unknown]
  - Localised infection [Unknown]
  - Bone pain [Unknown]
  - Blood creatinine increased [Unknown]
  - White blood cell count increased [Recovered/Resolved]
  - Pain in extremity [Unknown]
  - Impaired healing [Recovering/Resolving]
  - Osteonecrosis [Unknown]
  - Rash [Unknown]
  - Off label use [Not Recovered/Not Resolved]
  - Injection site pain [Unknown]
  - Oedema peripheral [Unknown]
  - Osteoarthritis [Unknown]

NARRATIVE: CASE EVENT DATE: 20200512
